FAERS Safety Report 16808210 (Version 4)
Quarter: 2020Q3

REPORT INFORMATION
  Report Type: Spontaneous
  Country: DE (occurrence: DE)
  Receive Date: 20190916
  Receipt Date: 20200806
  Transmission Date: 20201102
  Serious: Yes (Hospitalization, Other)
  Sender: FDA-Public Use
  Company Number: DE-UCBSA-2019038646

PATIENT
  Sex: Male
  Weight: 70 kg

DRUGS (33)
  1. DEXAMETHASONE. [Concomitant]
     Active Substance: DEXAMETHASONE
     Indication: PROPHYLAXIS
     Dosage: 8 MILLIGRAM, QD
     Route: 048
     Dates: start: 201811, end: 20181127
  2. FORTECORTIN [DEXAMETHASONE] [Concomitant]
     Active Substance: DEXAMETHASONE
     Dosage: 8 MILLIGRAM, ONCE DAILY (QD)
     Route: 048
     Dates: start: 201811, end: 201811
  3. REMICADE [Concomitant]
     Active Substance: INFLIXIMAB
     Indication: PROPHYLAXIS
     Dosage: 5 MILLIGRAM/KILOGRAM, QD
     Route: 042
     Dates: start: 20181001, end: 20181001
  4. L?THYROXIN [LEVOTHYROXINE SODIUM] [Concomitant]
     Active Substance: LEVOTHYROXINE SODIUM
     Indication: PRODUCT USED FOR UNKNOWN INDICATION
     Dosage: 25 MICROGRAM, ONCE DAILY (QD)
     Route: 048
     Dates: start: 20181203
  5. THIAMAZOL [Concomitant]
     Active Substance: METHIMAZOLE
     Indication: PRODUCT USED FOR UNKNOWN INDICATION
     Dosage: 2.5 MILLIGRAM, QD
     Route: 048
     Dates: start: 201811, end: 20181202
  6. DEXAMETHASONE. [Concomitant]
     Active Substance: DEXAMETHASONE
     Dosage: 4 MILLIGRAM, QD
     Route: 048
     Dates: start: 201812
  7. MONOVO [Concomitant]
     Indication: PRODUCT USED FOR UNKNOWN INDICATION
     Dosage: PRN, UNK
     Route: 061
     Dates: start: 201810, end: 201811
  8. CALCIUM [Concomitant]
     Active Substance: CALCIUM
     Indication: PROPHYLAXIS
     Dosage: 500 MILLIGRAM, BID
     Route: 048
     Dates: start: 20190813
  9. PANTOPRAZOL [PANTOPRAZOLE] [Concomitant]
     Active Substance: PANTOPRAZOLE
     Indication: PROPHYLAXIS
     Dosage: 40 MILLIGRAM, ONCE DAILY (QD)
     Route: 048
  10. HUMIRA [Concomitant]
     Active Substance: ADALIMUMAB
     Indication: PRODUCT USED FOR UNKNOWN INDICATION
     Dosage: 40 MILLIGRAM, Q2WK
     Route: 058
     Dates: start: 20190724
  11. PREDNISON [Concomitant]
     Active Substance: PREDNISONE
     Indication: PRODUCT USED FOR UNKNOWN INDICATION
     Dosage: 20 MILLIGRAM, ONCE DAILY (QD)
     Route: 048
     Dates: start: 20180913
  12. PREDNISOLON [PREDNISOLONE] [Concomitant]
     Active Substance: PREDNISOLONE
     Dosage: 10 MILLIGRAM, QD
     Route: 048
     Dates: start: 201810, end: 201811
  13. SERTALIN [Concomitant]
     Indication: PROPHYLAXIS
     Dosage: 150 MILLIGRAM, ONCE DAILY (QD)
     Route: 048
     Dates: start: 20190813
  14. PREDNISON [Concomitant]
     Active Substance: PREDNISONE
     Dosage: 10 MILLIGRAM, ONCE DAILY (QD)
     Route: 048
     Dates: start: 201810
  15. VIGANTOLETTEN [Concomitant]
     Active Substance: CHOLECALCIFEROL
     Indication: PROPHYLAXIS
     Dosage: UNK, QD
     Route: 048
  16. KARISON [Concomitant]
     Indication: PRODUCT USED FOR UNKNOWN INDICATION
     Dosage: UNK, PRN
     Route: 061
     Dates: start: 20181022, end: 201811
  17. FORTECORTIN [DEXAMETHASONE] [Concomitant]
     Active Substance: DEXAMETHASONE
     Indication: PRODUCT USED FOR UNKNOWN INDICATION
     Dosage: 8 MILLIGRAM, ONCE DAILY (QD)
     Route: 048
     Dates: start: 20181105, end: 20181105
  18. PREDNISOLON [PREDNISOLONE] [Concomitant]
     Active Substance: PREDNISOLONE
     Indication: PRODUCT USED FOR UNKNOWN INDICATION
     Dosage: 20 MILLIGRAM, QD
     Route: 048
     Dates: start: 20180913, end: 201811
  19. NIVOLUMAB [Suspect]
     Active Substance: NIVOLUMAB
     Indication: LUNG NEOPLASM MALIGNANT
     Dosage: 1 DOSAGE FORM, EV 3 WEEKS
     Dates: start: 20181002
  20. NIVOLUMAB [Suspect]
     Active Substance: NIVOLUMAB
     Dosage: 1 DOSAGE FORM, EV 3 WEEKS
     Dates: start: 20181203, end: 20181230
  21. IPILIMUMAB [Suspect]
     Active Substance: IPILIMUMAB
     Indication: LUNG NEOPLASM MALIGNANT
     Dosage: 1 DOSAGE FORM, Q3WK
     Dates: start: 20181203, end: 20181230
  22. DEXAMETHASONE. [Concomitant]
     Active Substance: DEXAMETHASONE
     Dosage: 6 MILLIGRAM, QD
     Route: 048
     Dates: start: 20181128, end: 201812
  23. FORTECORTIN [DEXAMETHASONE] [Concomitant]
     Active Substance: DEXAMETHASONE
     Dosage: 4 MILLIGRAM, ONCE DAILY (QD)
     Route: 048
     Dates: start: 20181106, end: 20181106
  24. PREDNISOLON [PREDNISOLONE] [Concomitant]
     Active Substance: PREDNISOLONE
     Dosage: 30 MILLIGRAM, QD
     Route: 048
     Dates: start: 201811
  25. PREDNISON [Concomitant]
     Active Substance: PREDNISONE
     Dosage: 30 MILLIGRAM, ONCE DAILY (QD)
     Route: 048
  26. KEPPRA [Suspect]
     Active Substance: LEVETIRACETAM
     Indication: PRODUCT USED FOR UNKNOWN INDICATION
     Dosage: 500 MILLIGRAM, 2X/DAY (BID)
     Route: 048
     Dates: start: 20190323
  27. NIVOLUMAB [Suspect]
     Active Substance: NIVOLUMAB
     Indication: MALIGNANT MELANOMA
     Dosage: 1 DOSAGE FORM, EV 2 WEEKS(QOW)
     Dates: start: 20180830, end: 20180913
  28. IPILIMUMAB [Suspect]
     Active Substance: IPILIMUMAB
     Indication: MALIGNANT MELANOMA
     Dosage: 1 DOSAGE FORM, Q3WK
     Dates: start: 20181002
  29. NOVALGIN [CAFFEINE;PARACETAMOL;PROPYPHENAZONE] [Concomitant]
     Active Substance: ACETAMINOPHEN\CAFFEINE\PROPYPHENAZONE
     Indication: PRODUCT USED FOR UNKNOWN INDICATION
     Dosage: 4 GRAM, QD
     Route: 048
     Dates: start: 20180104
  30. FORTECORTIN [DEXAMETHASONE] [Concomitant]
     Active Substance: DEXAMETHASONE
     Dosage: 2 MILLIGRAM, ONCE DAILY (QD)
     Route: 048
     Dates: start: 20181107, end: 20181107
  31. PALLADON [Concomitant]
     Active Substance: HYDROMORPHONE
     Indication: PRODUCT USED FOR UNKNOWN INDICATION
     Dosage: 8 MILLIGRAM, QD
     Route: 048
     Dates: start: 20180104
  32. ZEBINIX [Concomitant]
     Active Substance: ESLICARBAZEPINE ACETATE
     Indication: PROPHYLAXIS
     Dosage: 800 MILLIGRAM, QD
     Route: 048
     Dates: start: 20180815
  33. ENTOCORT [Concomitant]
     Active Substance: BUDESONIDE
     Indication: PRODUCT USED FOR UNKNOWN INDICATION
     Dosage: UNK, QD
     Route: 054
     Dates: start: 20180913, end: 2018

REACTIONS (7)
  - Photosensitivity reaction [Unknown]
  - Hypoacusis [Unknown]
  - Malignant neoplasm progression [Unknown]
  - Metastases to central nervous system [Unknown]
  - Erythema multiforme [Recovered/Resolved]
  - Tinnitus [Unknown]
  - Diarrhoea [Unknown]

NARRATIVE: CASE EVENT DATE: 20181225
